FAERS Safety Report 6905547-1 (Version None)
Quarter: 2010Q3

REPORT INFORMATION
  Report Type: 
  Country: None (occurrence: None)
  Receive Date: 20100804
  Receipt Date: 20100726
  Transmission Date: 20110219
  Serious: Yes (Other)
  Sender: FDA-Public Use
  Company Number: GB-PFIZER INC-2010093616

PATIENT
  Age: 91 Year
  Sex: Male

DRUGS (1)
  1. XALATAN [Suspect]
     Indication: CATARACT OPERATION
     Dosage: UNK
     Route: 047

REACTIONS (2)
  - OEDEMA MOUTH [None]
  - ORAL MUCOSAL EXFOLIATION [None]
